FAERS Safety Report 5989313-X (Version None)
Quarter: 2008Q4

REPORT INFORMATION
  Report Type: 
  Country: None (occurrence: None)
  Receive Date: 20081205
  Receipt Date: 20081121
  Transmission Date: 20090506
  Serious: Yes (Hospitalization)
  Sender: FDA-Public Use
  Company Number: 2008PL000180

PATIENT
  Age: 48 Year
  Sex: Male
  Weight: 70 kg

DRUGS (2)
  1. AZATHIOPRINE [Suspect]
     Indication: CROHN'S DISEASE
     Dosage: 2.5 MG/KG
  2. CIPROFLOXACIN HCL [Concomitant]

REACTIONS (3)
  - EPSTEIN-BARR VIRUS TEST POSITIVE [None]
  - NODULAR REGENERATIVE HYPERPLASIA [None]
  - PANCYTOPENIA [None]
